FAERS Safety Report 21252983 (Version 4)
Quarter: 2023Q2

REPORT INFORMATION
  Report Type: Spontaneous
  Country: FI (occurrence: FI)
  Receive Date: 20220825
  Receipt Date: 20230502
  Transmission Date: 20230722
  Serious: Yes (Hospitalization, Other)
  Sender: FDA-Public Use
  Company Number: None

PATIENT
  Age: 56 Year
  Sex: Female

DRUGS (9)
  1. COMIRNATY [Suspect]
     Active Substance: TOZINAMERAN
     Indication: COVID-19 immunisation
     Dosage: DOSE NUMBER UNKNOWN, SINGLE
     Route: 030
     Dates: start: 20210728, end: 20210728
  2. INFLIXIMAB [Suspect]
     Active Substance: INFLIXIMAB
     Indication: Peripheral spondyloarthritis
     Dosage: 300 MG
     Route: 042
     Dates: start: 20210630, end: 20210630
  3. INFLIXIMAB [Suspect]
     Active Substance: INFLIXIMAB
     Dosage: 300 MG
     Route: 042
     Dates: start: 20210830, end: 20210830
  4. INFLIXIMAB [Suspect]
     Active Substance: INFLIXIMAB
     Dosage: 300 MG
     Route: 042
     Dates: start: 20210913, end: 20210913
  5. CARDACE [RAMIPRIL] [Concomitant]
     Indication: Hypertension
     Dosage: 5 MG, DAILY
     Route: 048
  6. EMCONCOR COMP [Concomitant]
     Indication: Hypertension
     Dosage: 1 DF, DAILY
     Route: 048
  7. METHOTREXATE [Concomitant]
     Active Substance: METHOTREXATE
     Dosage: 15 MG, WEEKLY
     Route: 058
     Dates: start: 20200303
  8. FOLIC ACID [Concomitant]
     Active Substance: FOLIC ACID
     Dosage: 5 MG, WEEKLY
     Route: 048
     Dates: start: 20200330
  9. METHOTREXATE [Concomitant]
     Active Substance: METHOTREXATE
     Dosage: UNK

REACTIONS (27)
  - Antinuclear antibody increased [Recovering/Resolving]
  - Chronic inflammatory demyelinating polyradiculoneuropathy [Recovering/Resolving]
  - Nerve compression [Recovering/Resolving]
  - Pain [Recovering/Resolving]
  - Nodule [Recovering/Resolving]
  - Hypoaesthesia [Recovering/Resolving]
  - Myalgia [Recovering/Resolving]
  - Paraesthesia [Recovering/Resolving]
  - Muscular weakness [Recovering/Resolving]
  - Acute polyneuropathy [Recovering/Resolving]
  - Mononeuropathy multiplex [Recovering/Resolving]
  - Knee arthroplasty [Unknown]
  - Arthralgia [Unknown]
  - Pain in extremity [Unknown]
  - Blood pressure abnormal [Unknown]
  - Rheumatic disorder [Unknown]
  - Alanine aminotransferase increased [Unknown]
  - Tenderness [Unknown]
  - Musculoskeletal stiffness [Unknown]
  - Mass [Unknown]
  - Skin discolouration [Unknown]
  - Skin lesion [Unknown]
  - Blood immunoglobulin G increased [Unknown]
  - Radiculopathy [Unknown]
  - Sensory disturbance [Unknown]
  - Areflexia [Unknown]
  - Epstein-Barr virus infection [Unknown]

NARRATIVE: CASE EVENT DATE: 20210809
